FAERS Safety Report 4972093-4 (Version None)
Quarter: 2006Q2

REPORT INFORMATION
  Report Type: 
  Country: None (occurrence: None)
  Receive Date: 20060413
  Receipt Date: 20060202
  Transmission Date: 20061013
  Serious: Yes (Disabling)
  Sender: FDA-Public Use
  Company Number: FR-SANOFI-SYNTHELABO-A01200600840

PATIENT
  Sex: Male
  Weight: 78 kg

DRUGS (7)
  1. PLAVIX [Suspect]
     Indication: CORONARY ARTERY DISEASE
     Route: 048
     Dates: start: 20060121, end: 20060129
  2. CAPTEA [Concomitant]
     Indication: HYPERTENSION
     Dosage: UNK
     Route: 065
  3. MONO-TILDIEM [Concomitant]
     Indication: HYPERTENSION
     Route: 065
  4. VASTAREL [Concomitant]
     Indication: PROPHYLAXIS
     Route: 065
  5. VASTEN [Concomitant]
     Indication: PROPHYLAXIS
     Route: 065
  6. VASTEN [Concomitant]
     Route: 065
  7. INIPOMP [Concomitant]
     Indication: ABDOMINAL PAIN UPPER
     Route: 065

REACTIONS (2)
  - DIAPHRAGMATIC DISORDER [None]
  - HICCUPS [None]
